FAERS Safety Report 24823832 (Version 1)
Quarter: 2025Q1

REPORT INFORMATION
  Report Type: Spontaneous
  Country: US (occurrence: US)
  Receive Date: 20250109
  Receipt Date: 20250109
  Transmission Date: 20250409
  Serious: Yes (Death, Hospitalization, Other)
  Sender: AMGEN
  Company Number: US-AMGEN-USASP2024256561

PATIENT

DRUGS (2)
  1. INFLIXIMAB [Suspect]
     Active Substance: INFLIXIMAB
     Indication: Colitis ulcerative
     Route: 065
  2. PREDNISONE [Suspect]
     Active Substance: PREDNISONE
     Indication: Colitis ulcerative
     Route: 065

REACTIONS (10)
  - Death [Fatal]
  - Unevaluable event [Unknown]
  - Neoplasm [Unknown]
  - Lymphoma [Unknown]
  - Infection [Unknown]
  - Neoplasm malignant [Unknown]
  - Skin cancer [Unknown]
  - Hypersensitivity [Unknown]
  - Treatment noncompliance [Unknown]
  - Therapy non-responder [Unknown]
